FAERS Safety Report 4971027-6 (Version None)
Quarter: 2006Q2

REPORT INFORMATION
  Report Type: 
  Country: None (occurrence: None)
  Receive Date: 20060411
  Receipt Date: 20060411
  Transmission Date: 20061013
  Serious: Yes (Hospitalization)
  Sender: FDA-Public Use
  Company Number: None

PATIENT
  Age: 75 Year
  Sex: Male
  Weight: 96.8 kg

DRUGS (1)
  1. HURRICAINE [Suspect]
     Indication: PREOPERATIVE CARE

REACTIONS (3)
  - BLOOD METHAEMOGLOBIN PRESENT [None]
  - POST PROCEDURAL COMPLICATION [None]
  - UNEVALUABLE EVENT [None]
